FAERS Safety Report 24524861 (Version 1)
Quarter: 2024Q4

REPORT INFORMATION
  Report Type: Spontaneous
  Country: GB (occurrence: GB)
  Receive Date: 20241019
  Receipt Date: 20241019
  Transmission Date: 20250114
  Serious: Yes (Hospitalization, Other)
  Sender: AUROBINDO
  Company Number: GB-MHRA-MED-202410071614568820-GLCJV

PATIENT
  Age: 77 Year
  Sex: Female
  Weight: 92 kg

DRUGS (1)
  1. DONEPEZIL [Suspect]
     Active Substance: DONEPEZIL
     Indication: Mixed dementia
     Dosage: 5 MILLIGRAM
     Route: 048
     Dates: start: 20241004, end: 20241005

REACTIONS (2)
  - Medication error [Unknown]
  - Illness [Recovered/Resolved]

NARRATIVE: CASE EVENT DATE: 20241004
